FAERS Safety Report 8061613-1 (Version None)
Quarter: 2012Q1

REPORT INFORMATION
  Report Type: 
  Country: None (occurrence: None)
  Receive Date: 20120122
  Receipt Date: 20120111
  Transmission Date: 20120608
  Serious: Yes (Hospitalization, Other)
  Sender: FDA-Public Use
  Company Number: JP-AMGEN-JPNSP2012002824

PATIENT
  Sex: Female

DRUGS (2)
  1. RHEUMATREX [Concomitant]
     Dosage: 8 MG, WEEKLY
     Route: 048
  2. ENBREL [Suspect]
     Indication: RHEUMATOID ARTHRITIS
     Dosage: 50 MG, WEEKLY
     Route: 058
     Dates: start: 20110107

REACTIONS (2)
  - RHEUMATOID ARTHRITIS [None]
  - PLEURISY [None]
